FAERS Safety Report 8301380-7 (Version None)
Quarter: 2012Q2

REPORT INFORMATION
  Report Type: 
  Country: None (occurrence: None)
  Receive Date: 20120420
  Receipt Date: 20120412
  Transmission Date: 20120825
  Serious: Yes (Other)
  Sender: FDA-Public Use
  Company Number: CL-BAYER-2012-035984

PATIENT
  Age: 40 Year
  Sex: Female

DRUGS (1)
  1. ESTRADIOL VALERATE/DIENOGEST [Suspect]
     Dosage: UNK
     Route: 048
     Dates: start: 20111001

REACTIONS (1)
  - BENIGN HYDATIDIFORM MOLE [None]
